FAERS Safety Report 4629897-7 (Version None)
Quarter: 2005Q2

REPORT INFORMATION
  Report Type: 
  Country: None (occurrence: None)
  Receive Date: 20050406
  Receipt Date: 20050323
  Transmission Date: 20051028
  Serious: Yes (Other)
  Sender: FDA-Public Use
  Company Number: AU_050308449

PATIENT
  Age: 57 Year
  Sex: Male
  Weight: 64 kg

DRUGS (8)
  1. ALIMTA [Suspect]
     Indication: NON-SMALL CELL LUNG CANCER STAGE IV
     Dosage: 840 MG OTHER
     Dates: start: 20050121
  2. CISPLATIN [Suspect]
     Indication: NON-SMALL CELL LUNG CANCER STAGE IV
     Dosage: 126 MG OTHER
     Dates: start: 20050121
  3. ASTRIX (ACETYLSALICYLIC ACID) [Concomitant]
  4. NOTEN (ATENOLOL EG) [Concomitant]
  5. LIPITOR [Concomitant]
  6. IMDUR [Concomitant]
  7. FOLIC ACID [Concomitant]
  8. DEXAMETHASONE [Concomitant]

REACTIONS (1)
  - IDIOPATHIC THROMBOCYTOPENIC PURPURA [None]
